FAERS Safety Report 16645634 (Version 25)
Quarter: 2022Q4

REPORT INFORMATION
  Report Type: Report from Study
  Country: JP (occurrence: JP)
  Receive Date: 20190730
  Receipt Date: 20221227
  Transmission Date: 20230112
  Serious: Yes (Hospitalization, Disabling, Other)
  Sender: FDA-Public Use
  Company Number: JP-ONO-2019JP026195

PATIENT
  Age: 82 Year
  Sex: Male
  Weight: 55.3 kg

DRUGS (29)
  1. ETELCALCETIDE [Suspect]
     Active Substance: ETELCALCETIDE
     Indication: Hyperparathyroidism secondary
     Dosage: 5 MILLIGRAM, Q56H
     Route: 010
     Dates: start: 20181123, end: 20190619
  2. ETELCALCETIDE [Suspect]
     Active Substance: ETELCALCETIDE
     Dosage: 2.5 MILLIGRAM, Q56H
     Route: 010
     Dates: start: 20190621, end: 20201218
  3. DARBEPOETIN ALFA [Concomitant]
     Active Substance: DARBEPOETIN ALFA
     Dosage: 40 MICROGRAM, QWK
     Route: 065
     Dates: start: 20210208, end: 20210503
  4. DARBEPOETIN ALFA [Concomitant]
     Active Substance: DARBEPOETIN ALFA
     Dosage: 60 MICROGRAM, QWK
     Route: 065
     Dates: start: 20210510, end: 20220606
  5. DARBEPOETIN ALFA [Concomitant]
     Active Substance: DARBEPOETIN ALFA
     Dosage: 60 MICROGRAM, QWK
     Route: 065
     Dates: start: 20220926
  6. ROCALTROL [Concomitant]
     Active Substance: CALCITRIOL
     Dosage: 0.5 MICROGRAM, Q56H
     Route: 042
     Dates: end: 20181017
  7. ROCALTROL [Concomitant]
     Active Substance: CALCITRIOL
     Dosage: 1 MICROGRAM, Q56H
     Route: 042
     Dates: start: 20181019, end: 20190904
  8. ROCALTROL [Concomitant]
     Active Substance: CALCITRIOL
     Dosage: 0.5 MICROGRAM, Q56H
     Route: 042
     Dates: start: 20190906, end: 20201218
  9. Fesin [Concomitant]
     Dosage: 40 MILLIGRAM, QWK
     Route: 065
     Dates: end: 20180709
  10. Fesin [Concomitant]
     Dosage: 40 MILLIGRAM, QWK
     Route: 065
     Dates: start: 20190513, end: 20190617
  11. Fesin [Concomitant]
     Dosage: 40 MILLIGRAM, QWK
     Route: 065
     Dates: start: 20200302, end: 20200406
  12. Fesin [Concomitant]
     Dosage: 40 MILLIGRAM, QWK
     Route: 065
     Dates: start: 20200511, end: 20200615
  13. Fesin [Concomitant]
     Dosage: 40 MILLIGRAM, QWK
     Route: 065
     Dates: start: 20200713, end: 20200817
  14. Fesin [Concomitant]
     Dosage: 40 MILLIGRAM, QWK
     Route: 065
     Dates: start: 20210125, end: 20210301
  15. Fesin [Concomitant]
     Dosage: 40 MILLIGRAM, QWK
     Route: 065
     Dates: start: 20210809, end: 20210913
  16. ERYTHROPOIETIN [Concomitant]
     Active Substance: ERYTHROPOIETIN
     Indication: Nephrogenic anaemia
     Dosage: 4500 INTERNATIONAL UNIT, QWK
     Route: 065
     Dates: end: 20180629
  17. ERYTHROPOIETIN [Concomitant]
     Active Substance: ERYTHROPOIETIN
     Dosage: 6000 INTERNATIONAL UNIT, QWK
     Route: 065
     Dates: start: 20180702, end: 20190218
  18. ERYTHROPOIETIN [Concomitant]
     Active Substance: ERYTHROPOIETIN
     Dosage: 9000 INTERNATIONAL UNIT, QWK
     Route: 065
     Dates: start: 20190222, end: 20190619
  19. ERYTHROPOIETIN [Concomitant]
     Active Substance: ERYTHROPOIETIN
     Dosage: 4500 INTERNATIONAL UNIT, QWK
     Route: 065
     Dates: start: 20190621, end: 20200925
  20. ERYTHROPOIETIN [Concomitant]
     Active Substance: ERYTHROPOIETIN
     Dosage: 3000 INTERNATIONAL UNIT, QWK
     Route: 065
     Dates: start: 20200928
  21. ERYTHROPOIETIN [Concomitant]
     Active Substance: ERYTHROPOIETIN
     Dosage: 1500 INTERNATIONAL UNIT, Q56H
     Route: 065
     Dates: start: 20201012
  22. ERYTHROPOIETIN [Concomitant]
     Active Substance: ERYTHROPOIETIN
     Dosage: 3000 INTERNATIONAL UNIT, QWK
     Route: 065
     Dates: end: 20201218
  23. ERYTHROPOIETIN [Concomitant]
     Active Substance: ERYTHROPOIETIN
     Dosage: 3000 INTERNATIONAL UNIT, Q56H
     Route: 065
     Dates: start: 20210115, end: 20210205
  24. ERYTHROPOIETIN [Concomitant]
     Active Substance: ERYTHROPOIETIN
     Dosage: 9000 INTERNATIONAL UNIT, QWK
     Route: 065
     Dates: start: 20220613, end: 20220923
  25. WARFARIN POTASSIUM [Concomitant]
     Active Substance: WARFARIN POTASSIUM
     Indication: Atrial fibrillation
     Dosage: 1.5 MILLIGRAM, QD
     Route: 048
     Dates: start: 20200129, end: 20201220
  26. WARFARIN POTASSIUM [Concomitant]
     Active Substance: WARFARIN POTASSIUM
     Dosage: 1.25 MILLIGRAM, QD
     Route: 048
  27. NEXIUM [Concomitant]
     Active Substance: ESOMEPRAZOLE MAGNESIUM
     Indication: Gastrooesophageal reflux disease
     Dosage: 20 MILLIGRAM, QD
     Route: 048
     Dates: start: 20161219
  28. CANDESARTAN [Concomitant]
     Active Substance: CANDESARTAN
     Indication: Hypertension
     Dosage: 2 MILLIGRAM, QD
     Route: 048
     Dates: start: 20170920, end: 20210114
  29. Calfina [Concomitant]
     Dosage: 0.5 MICROGRAM, QD
     Route: 048
     Dates: start: 20210424, end: 20220824

REACTIONS (5)
  - Locomotive syndrome [Not Recovered/Not Resolved]
  - Subdural haematoma [Recovering/Resolving]
  - Femur fracture [Recovering/Resolving]
  - Fall [Unknown]
  - Contusion [Unknown]

NARRATIVE: CASE EVENT DATE: 20200425
